FAERS Safety Report 13913886 (Version 1)
Quarter: 2017Q3

REPORT INFORMATION
  Report Type: Spontaneous
  Country: US (occurrence: US)
  Receive Date: 20170828
  Receipt Date: 20170828
  Transmission Date: 20171127
  Serious: No
  Sender: FDA-Public Use
  Company Number: US-ROCHE-1140248

PATIENT
  Age: 30 Year
  Sex: Female

DRUGS (5)
  1. SYNTHROID [Concomitant]
     Active Substance: LEVOTHYROXINE SODIUM
  2. NUTROPIN AQ [Suspect]
     Active Substance: SOMATROPIN
     Indication: HYPOPITUITARISM
     Route: 058
  3. CORTEF [Concomitant]
     Active Substance: HYDROCORTISONE
  4. PARACETAMOL [Concomitant]
     Active Substance: ACETAMINOPHEN
  5. NUTROPIN AQ [Suspect]
     Active Substance: SOMATROPIN
     Route: 058

REACTIONS (4)
  - Anxiety [Unknown]
  - Dizziness [Unknown]
  - Feeling jittery [Unknown]
  - Palpitations [Unknown]

NARRATIVE: CASE EVENT DATE: 19980520
